FAERS Safety Report 5022261-0 (Version None)
Quarter: 2006Q2

REPORT INFORMATION
  Report Type: 
  Country: None (occurrence: None)
  Receive Date: 20060609
  Receipt Date: 20060530
  Transmission Date: 20061013
  Serious: Yes (Other)
  Sender: FDA-Public Use
  Company Number: PHEH2006US07104

PATIENT
  Age: 42 Year
  Sex: Female
  Weight: 85.26 kg

DRUGS (1)
  1. GLEEVEC [Suspect]
     Indication: CHRONIC MYELOID LEUKAEMIA
     Dosage: 400 MG, QD
     Route: 048
     Dates: start: 20040208, end: 20060530

REACTIONS (5)
  - BLOOD IMMUNOGLOBULIN G INCREASED [None]
  - CSF OLIGOCLONAL BAND PRESENT [None]
  - NUCLEAR MAGNETIC RESONANCE IMAGING BRAIN ABNORMAL [None]
  - VERTIGO [None]
  - VISUAL DISTURBANCE [None]
